FAERS Safety Report 13165370 (Version 1)
Quarter: 2017Q1

REPORT INFORMATION
  Report Type: Spontaneous
  Country: US (occurrence: US)
  Receive Date: 20170131
  Receipt Date: 20170131
  Transmission Date: 20170428
  Serious: No
  Sender: FDA-Public Use
  Company Number: US-BAXTER-2017BAX002395

PATIENT

DRUGS (1)
  1. GENTAMICIN SULFATE IN 0.9% SODIUM CHLORIDE INJECTION [Suspect]
     Active Substance: GENTAMICIN SULFATE
     Indication: NEONATAL INFECTION
     Dosage: IVPB VIA UMBILICAL VENOUS CATHETER MED PORT, PACKED BAG:50 ML, POTENCY 100 MG IN 50 ML
     Route: 042

REACTIONS (1)
  - Drug level decreased [Recovered/Resolved]

NARRATIVE: CASE EVENT DATE: 20160523
